FAERS Safety Report 19025487 (Version 1)
Quarter: 2021Q1

REPORT INFORMATION
  Report Type: Spontaneous
  Country: RS (occurrence: RS)
  Receive Date: 20210318
  Receipt Date: 20210318
  Transmission Date: 20210420
  Serious: Yes (Other)
  Sender: FDA-Public Use
  Company Number: RS-LUPIN PHARMACEUTICALS INC.-2021-00255

PATIENT
  Age: 46 Year
  Sex: Female

DRUGS (1)
  1. METHYLPREDNISOLONE. [Suspect]
     Active Substance: METHYLPREDNISOLONE
     Indication: WEBER-CHRISTIAN DISEASE
     Dosage: UNK UNK, QD (20?30 MG/DAY)
     Route: 048

REACTIONS (1)
  - Drug ineffective [Unknown]
